FAERS Safety Report 10079213 (Version 2)
Quarter: 2014Q2

REPORT INFORMATION
  Report Type: Report from Study
  Country: US (occurrence: US)
  Receive Date: 20140415
  Receipt Date: 20140415
  Transmission Date: 20141212
  Serious: Yes (Hospitalization, Other)
  Sender: FDA-Public Use
  Company Number: US-NAPPMUNDI-USA-2014-0111833

PATIENT
  Age: 53 Year
  Sex: Female
  Weight: 55.33 kg

DRUGS (2)
  1. OXY CR TAB [Suspect]
     Indication: PAIN
     Dosage: 20 MG, Q12H
     Route: 048
     Dates: start: 20140203
  2. OXY CR TAB [Suspect]
     Dosage: 20 MG, UNK
     Dates: start: 20131015

REACTIONS (4)
  - Abdominal discomfort [Unknown]
  - Migraine [Unknown]
  - Pain [Unknown]
  - Metastases to peritoneum [Unknown]
